FAERS Safety Report 12591594 (Version 3)
Quarter: 2016Q3

REPORT INFORMATION
  Report Type: Spontaneous
  Country: US (occurrence: US)
  Receive Date: 20160726
  Receipt Date: 20160831
  Transmission Date: 20161109
  Serious: Yes (Hospitalization)
  Sender: FDA-Public Use
  Company Number: US-JNJFOC-20160707065

PATIENT
  Age: 64 Year
  Sex: Female
  Weight: 94.8 kg

DRUGS (20)
  1. CLOBETASOL [Concomitant]
     Active Substance: CLOBETASOL
     Dosage: APPLY AS DIRECTED. USE 5 DAYS ON AND 2 DAYS OFF
     Route: 061
  2. CYANOCOBALAMIN. [Concomitant]
     Active Substance: CYANOCOBALAMIN
     Dosage: *OFFICE ADMINISTERED* * I ,000 MCG/ML SOLUTION, ONCE A MONTH FOR 4 DOSES
     Route: 030
  3. SERTRALINE [Concomitant]
     Active Substance: SERTRALINE HYDROCHLORIDE
     Route: 065
  4. CALCIUM CARBONATE. [Concomitant]
     Active Substance: CALCIUM CARBONATE
     Dosage: 600 MG (1,500 MG)
     Route: 048
  5. OXYCODONE AND ACETAMINOPHEN [Concomitant]
     Active Substance: ACETAMINOPHEN\OXYCODONE HYDROCHLORIDE
     Indication: PAIN
     Dosage: 5-325 MG TABLET??2 IN AM AND 1 IN PM AS NEEDED
     Route: 048
  6. WELLBUTRIN [Concomitant]
     Active Substance: BUPROPION HYDROCHLORIDE
     Dosage: DAILY IN THE MORNING
     Route: 048
  7. IMODIUM A-D [Concomitant]
     Active Substance: LOPERAMIDE HYDROCHLORIDE
     Indication: DIARRHOEA
     Dosage: AS NEEDED
     Route: 048
  8. SEROQUEL [Concomitant]
     Active Substance: QUETIAPINE FUMARATE
     Dosage: IN THE EVENING AS NEEDED
     Route: 048
  9. STELARA [Suspect]
     Active Substance: USTEKINUMAB
     Indication: PSORIASIS
     Dosage: SYRINGE
     Route: 058
     Dates: start: 20160602, end: 20160708
  10. ALPRAZOLAM. [Concomitant]
     Active Substance: ALPRAZOLAM
     Indication: ANXIETY
     Route: 048
  11. ACETAMINOPHEN. [Concomitant]
     Active Substance: ACETAMINOPHEN
     Dosage: AS NEEDED
     Route: 065
  12. CALCIUM ACETATE. [Concomitant]
     Active Substance: CALCIUM ACETATE
     Dosage: SOAK HANDS FOR 10 MINUTES, THEN APPLY STEROID OINTMENT
     Route: 061
  13. CHOLECALCIFEROL [Concomitant]
     Active Substance: CHOLECALCIFEROL
     Indication: VITAMIN D DEFICIENCY
     Dosage: 1,000 UNIT
     Route: 048
  14. LEVOTHYROXINE. [Concomitant]
     Active Substance: LEVOTHYROXINE
     Dosage: 1 TABLET(S) BY MOUTH ONCE DAILY TAKE ON AN EMPTY STOMACH, TOTAL DAILY DOSE 225 MCG DAILY
     Route: 048
  15. LITHIUM CARBONATE. [Concomitant]
     Active Substance: LITHIUM CARBONATE
     Route: 048
  16. ROPINIROLE. [Concomitant]
     Active Substance: ROPINIROLE
     Indication: RESTLESS LEGS SYNDROME
     Dosage: 5 TABLET(S) BY MOUTH ONCE DAILY
     Route: 048
  17. ALENDRONATE [Concomitant]
     Active Substance: ALENDRONATE SODIUM
     Dosage: TAKE ON AN EMPTY STOMACH, FULL GLASS OF WATER, REMAIN UPRIGHT FOR 30 MINS
     Route: 048
  18. AMOXICILLIN. [Concomitant]
     Active Substance: AMOXICILLIN
     Dosage: AS DIRECTED BY MOUTH TAKE 4 CAPSULES WITHIN ONE HOUR PRIOR TO DENTAL PROCEDURES
     Route: 048
  19. TIZANIDINE. [Concomitant]
     Active Substance: TIZANIDINE
     Indication: MUSCLE SPASMS
     Route: 048
  20. BUSPIRONE [Concomitant]
     Active Substance: BUSPIRONE HYDROCHLORIDE
     Route: 048

REACTIONS (4)
  - Staphylococcal infection [Recovered/Resolved]
  - Drug dose omission [Unknown]
  - Device related infection [Recovered/Resolved]
  - Product colour issue [Unknown]

NARRATIVE: CASE EVENT DATE: 20160706
